FAERS Safety Report 9307870 (Version 2)
Quarter: 2013Q2

REPORT INFORMATION
  Report Type: Spontaneous
  Country: GB (occurrence: GB)
  Receive Date: 20130524
  Receipt Date: 20130529
  Transmission Date: 20140414
  Serious: Yes (Hospitalization, Other)
  Sender: FDA-Public Use
  Company Number: GB-ROCHE-1227716

PATIENT
  Sex: Female
  Weight: 87.9 kg

DRUGS (4)
  1. ZELBORAF [Suspect]
     Indication: METASTATIC MALIGNANT MELANOMA
     Route: 048
     Dates: start: 20130417, end: 20130503
  2. ZELBORAF [Suspect]
     Dosage: 25% DOSE REDUCED
     Route: 048
     Dates: start: 20130511, end: 20130515
  3. ASPIRIN [Concomitant]
     Route: 048
  4. THYROXINE [Concomitant]

REACTIONS (3)
  - Photosensitivity reaction [Recovered/Resolved]
  - Skin lesion [Recovering/Resolving]
  - Arthralgia [Recovering/Resolving]
